FAERS Safety Report 8595580-9 (Version None)
Quarter: 2012Q3

REPORT INFORMATION
  Report Type: 
  Country: None (occurrence: None)
  Receive Date: 20120815
  Receipt Date: 20071119
  Transmission Date: 20120928
  Serious: Yes (Other)
  Sender: FDA-Public Use
  Company Number: CO-PFIZER INC-2012197432

PATIENT
  Age: 67 Year
  Sex: Male

DRUGS (5)
  1. NORVASC [Suspect]
     Indication: HYPERTENSION
     Dosage: 10 MG EVERY 24 HOURS
  2. OLMESARTAN MEDOXOMIL AND HYDROCHLOROTHIZIDE [Suspect]
     Indication: HYPERTENSION
     Dosage: [OLMESARTAN MEDOXOMIL 20]/[HYDROCHLOROTHIAZIDE 12.5] MG, EVERY 24 HOURS
  3. ASPIRIN [Concomitant]
     Dosage: 100 MG EVERY 24 HOURS
  4. LIPITOR [Suspect]
     Indication: DYSLIPIDAEMIA
     Dosage: 20 MG EVERY 24 HOURS
  5. METOPROLOL TARTRATE [Concomitant]
     Dosage: 50 MG EVERY 12 HOURS

REACTIONS (1)
  - HAEMATURIA [None]
